FAERS Safety Report 4796038-5 (Version None)
Quarter: 2005Q4

REPORT INFORMATION
  Report Type: 
  Country: None (occurrence: None)
  Receive Date: 20051012
  Receipt Date: 20050725
  Transmission Date: 20060501
  Serious: Yes (Hospitalization)
  Sender: FDA-Public Use
  Company Number: JP-SANOFI-SYNTHELABO-F01200501448

PATIENT
  Sex: Female
  Weight: 65 kg

DRUGS (16)
  1. CLOPIDOGREL BISULFATE [Suspect]
     Indication: ACUTE CORONARY SYNDROME
     Dosage: 300 MG LOADING DOSE FOLLOWED BY 75 MG/DAY
     Route: 048
     Dates: start: 20050413, end: 20050510
  2. CLOPIDOGREL BISULFATE [Suspect]
     Dosage: 75 MG
     Route: 048
     Dates: start: 20050512
  3. FRANDOL [Concomitant]
     Indication: ANGINA PECTORIS
     Dosage: 40 MG
     Route: 046
     Dates: start: 20050413
  4. BLOPRESS [Concomitant]
     Indication: HYPERTENSION
     Dosage: 8 MG
     Route: 048
     Dates: start: 20021016
  5. NORVASC [Concomitant]
     Indication: HYPERTENSION
     Dosage: 5 MG
     Route: 048
     Dates: start: 20030402
  6. ALTAT [Concomitant]
     Indication: GASTRITIS
     Dosage: 300 MG
     Route: 048
     Dates: start: 20050413
  7. ISOSORBIDE MONONITRATE [Concomitant]
     Indication: ANGINA PECTORIS
     Dosage: 180 MG
     Route: 048
     Dates: start: 20050413
  8. DAONIL [Concomitant]
     Indication: DIABETES MELLITUS
     Dosage: 1.25 MG
     Route: 048
     Dates: start: 19990110, end: 20050420
  9. DAONIL [Concomitant]
     Dosage: 2.5 MG
     Route: 048
     Dates: start: 20050421
  10. ASPIRIN [Concomitant]
     Indication: THROMBOSIS PROPHYLAXIS
     Dosage: 100 MG
     Route: 048
     Dates: start: 20050413
  11. HOKUNALIN [Concomitant]
     Indication: ASTHMA
     Dosage: 2 MG
     Route: 046
     Dates: start: 20050722
  12. CLARITHROMYCIN [Concomitant]
     Indication: ASTHMA
     Route: 048
     Dates: start: 20050722
  13. MEDICON [Concomitant]
     Indication: ASTHMA
     Route: 048
     Dates: start: 20050722, end: 20050725
  14. UNIPHYL [Concomitant]
     Indication: ASTHMA
     Dosage: 400 MG
     Route: 048
     Dates: start: 20050722, end: 20050725
  15. SOL MEDROL [Concomitant]
     Indication: ASTHMA
     Dosage: 125 MG
     Route: 041
     Dates: start: 20050722, end: 20050722
  16. SOL MEDROL [Concomitant]
     Dosage: 125 MG
     Route: 041
     Dates: start: 20050725, end: 20050725

REACTIONS (1)
  - ASTHMA [None]
